FAERS Safety Report 11210858 (Version 2)
Quarter: 2015Q3

REPORT INFORMATION
  Report Type: Report from Study
  Country: BR (occurrence: BR)
  Receive Date: 20150622
  Receipt Date: 20150706
  Transmission Date: 20151125
  Serious: Yes (Hospitalization)
  Sender: FDA-Public Use
  Company Number: PHHY2015BR070647

PATIENT
  Sex: Male
  Weight: 26 kg

DRUGS (3)
  1. ZOTEON [Suspect]
     Active Substance: TOBRAMYCIN
     Indication: CYSTIC FIBROSIS
     Dosage: 8 CAPSULES DAILY
     Route: 055
     Dates: start: 2015
  2. TOBI [Suspect]
     Active Substance: TOBRAMYCIN
     Indication: CYSTIC FIBROSIS
     Dosage: 2 INHALATIONS DAILY FOR 28 DAYS (EVERY 2 MONTHS), START DATE: (4 YEARS AGO)
     Route: 055
     Dates: end: 2015
  3. PULMOZYME [Concomitant]
     Active Substance: DORNASE ALFA
     Indication: PRODUCT USED FOR UNKNOWN INDICATION
     Dosage: 1 DF, QD, START DATE: 8 YEARS AGO)
     Route: 055

REACTIONS (1)
  - Cystic fibrosis [Recovered/Resolved]
